FAERS Safety Report 8859585 (Version 1)
Quarter: 2012Q4

REPORT INFORMATION
  Report Type: Spontaneous
  Country: US (occurrence: None)
  Receive Date: 20121023
  Receipt Date: 20121023
  Transmission Date: 20130627
  Serious: Yes (Other)
  Sender: FDA-Public Use
  Company Number: AUR-APL-2012-04556

PATIENT

DRUGS (1)
  1. VENLAFAXINE [Suspect]
     Indication: DRUG USE FOR UNKNOWN INDICATION
     Dosage: 150 mg (75 mg, 2 in 1 D), Unknown

REACTIONS (5)
  - Anxiety [None]
  - Depression [None]
  - Anger [None]
  - Hostility [None]
  - Feeling abnormal [None]
